FAERS Safety Report 8042339-7 (Version None)
Quarter: 2012Q1

REPORT INFORMATION
  Report Type: 
  Country: None (occurrence: None)
  Receive Date: 20120112
  Receipt Date: 20120110
  Transmission Date: 20120608
  Serious: Yes (Hospitalization, Other)
  Sender: FDA-Public Use
  Company Number: US-ROCHE-1012872

PATIENT
  Sex: Female

DRUGS (6)
  1. FLUTICASONE [Concomitant]
  2. XOLAIR [Suspect]
     Route: 048
  3. ADVAIR HFA [Concomitant]
     Dosage: 230 21 MCG
  4. SINGULAIR [Concomitant]
     Route: 048
  5. XOLAIR [Suspect]
     Indication: ASTHMA
     Route: 048
     Dates: start: 20110920
  6. OMEPRAZOLE [Concomitant]
     Route: 048

REACTIONS (4)
  - CHEST DISCOMFORT [None]
  - ANAPHYLACTIC REACTION [None]
  - PARAESTHESIA ORAL [None]
  - WHEEZING [None]
